FAERS Safety Report 22678155 (Version 7)
Quarter: 2024Q1

REPORT INFORMATION
  Report Type: Report from Study
  Country: US (occurrence: US)
  Receive Date: 20230706
  Receipt Date: 20240209
  Transmission Date: 20240409
  Serious: Yes (Hospitalization)
  Sender: FDA-Public Use
  Company Number: US-009507513-2304USA004885

PATIENT
  Age: 64 Year
  Sex: Male
  Weight: 99.34 kg

DRUGS (89)
  1. RIVAROXABAN [Suspect]
     Active Substance: RIVAROXABAN
     Indication: Thrombosis prophylaxis
     Dosage: 20 MG, QD
     Route: 048
     Dates: start: 20230310, end: 20230406
  2. RIVAROXABAN [Suspect]
     Active Substance: RIVAROXABAN
     Dosage: 20 MG, QD
     Route: 048
     Dates: start: 20230407, end: 20230407
  3. ASPIRIN [Suspect]
     Active Substance: ASPIRIN
     Indication: Cardiovascular event prophylaxis
     Dosage: 81 MG, QD
     Route: 048
     Dates: start: 20220601
  4. VERICIGUAT [Suspect]
     Active Substance: VERICIGUAT
     Indication: Left ventricular failure
     Dosage: UNK
     Route: 048
     Dates: start: 20220210, end: 20220725
  5. ATORVASTATIN [Concomitant]
     Active Substance: ATORVASTATIN
     Indication: Hypercholesterolaemia
     Dosage: 80 MG, QD
     Route: 048
     Dates: start: 202112
  6. ATORVASTATIN [Concomitant]
     Active Substance: ATORVASTATIN
     Indication: Hyperlipidaemia
     Dosage: 80 MG, QD
     Dates: start: 20220913, end: 20230407
  7. PEPCID [Concomitant]
     Active Substance: FAMOTIDINE
     Indication: Dyspepsia
     Dosage: 20 MG, BID
     Route: 048
     Dates: start: 202112
  8. TRELEGY ELLIPTA [Concomitant]
     Active Substance: FLUTICASONE FUROATE\UMECLIDINIUM BROMIDE\VILANTEROL TRIFENATATE
     Indication: Asthma-chronic obstructive pulmonary disease overlap syndrome
     Dosage: 100 DF, QD
     Route: 055
     Dates: start: 202112
  9. UMECLIDINIUM [Concomitant]
     Active Substance: UMECLIDINIUM
     Indication: Asthma-chronic obstructive pulmonary disease overlap syndrome
     Dosage: 62.5 DF, QD
     Route: 055
     Dates: start: 202112
  10. VILANTEROL [Concomitant]
     Active Substance: VILANTEROL
     Indication: Asthma-chronic obstructive pulmonary disease overlap syndrome
     Dosage: 25 DF, QD
     Route: 055
     Dates: start: 202112
  11. VENTOLIN HFA [Concomitant]
     Active Substance: ALBUTEROL SULFATE
     Indication: Asthma-chronic obstructive pulmonary disease overlap syndrome
     Dosage: 2 PUFF(S), PRN
     Route: 055
     Dates: start: 202112
  12. MELATONIN [Concomitant]
     Active Substance: MELATONIN
     Indication: Sleep disorder therapy
     Dosage: 5 MG, PRN
     Route: 048
     Dates: start: 202112
  13. MELATONIN [Concomitant]
     Active Substance: MELATONIN
     Dosage: 3 MG, PRN
     Route: 048
  14. TYLENOL PM [Concomitant]
     Active Substance: ACETAMINOPHEN\DIPHENHYDRAMINE
     Indication: Sleep disorder therapy
     Dosage: 200 MG, PRN
     Route: 048
     Dates: start: 202112
  15. TOUJEO [Concomitant]
     Active Substance: INSULIN GLARGINE
     Indication: Type 2 diabetes mellitus
     Dosage: 60 DF, QD
     Route: 058
     Dates: start: 202202
  16. ACETAMINOPHEN [Concomitant]
     Active Substance: ACETAMINOPHEN
     Indication: Product used for unknown indication
     Dosage: 2600 MG, PRN
     Route: 048
     Dates: start: 20220530
  17. CARBOXYMETHYLCELLULOSE [Concomitant]
     Active Substance: CARBOXYMETHYLCELLULOSE
     Indication: Product used for unknown indication
     Dosage: 1 DROP, PRN
     Route: 047
     Dates: start: 20220531
  18. ERTUGLIFLOZIN [Concomitant]
     Active Substance: ERTUGLIFLOZIN
     Indication: Type 2 diabetes mellitus
     Dosage: 15 MG, QD
     Route: 048
     Dates: start: 202206
  19. SITAGLIPTIN [Concomitant]
     Active Substance: SITAGLIPTIN
     Indication: Type 2 diabetes mellitus
     Dosage: 100 MG, QD
     Route: 048
     Dates: start: 202206
  20. NITROGLYCERIN [Concomitant]
     Active Substance: NITROGLYCERIN
     Indication: Cardiovascular event prophylaxis
     Dosage: 0.4 MG, PRN
     Route: 060
     Dates: start: 202206
  21. OXYCODONE [Concomitant]
     Active Substance: OXYCODONE\OXYCODONE HYDROCHLORIDE
     Indication: Pain prophylaxis
     Dosage: 5 MG, PRN
     Route: 048
     Dates: start: 202206
  22. OXYCODONE [Concomitant]
     Active Substance: OXYCODONE\OXYCODONE HYDROCHLORIDE
     Dosage: 5 MG, PRN
     Route: 048
     Dates: start: 20230310
  23. FUROSEMIDE [Concomitant]
     Active Substance: FUROSEMIDE
     Indication: Cardiac failure congestive
     Dosage: 60 MG, BID
     Route: 042
     Dates: start: 20220724
  24. FUROSEMIDE [Concomitant]
     Active Substance: FUROSEMIDE
     Dosage: 40 MG, BID
     Route: 048
     Dates: start: 20221118
  25. ALBUTEROL\IPRATROPIUM [Concomitant]
     Active Substance: ALBUTEROL\IPRATROPIUM
     Indication: Chronic obstructive pulmonary disease
     Dosage: 1 PUFF(S), QID
     Route: 055
     Dates: start: 20220724
  26. LINAGLIPTIN [Concomitant]
     Active Substance: LINAGLIPTIN
     Indication: Type 2 diabetes mellitus
     Dosage: 5 MG, QD
     Route: 048
     Dates: start: 20220724
  27. SODIUM ZIRCONIUM CYCLOSILICATE [Concomitant]
     Active Substance: SODIUM ZIRCONIUM CYCLOSILICATE
     Indication: Hyperkalaemia
     Dosage: 10 G, TID
     Route: 048
     Dates: start: 20220724
  28. METRONIDAZOLE [Concomitant]
     Active Substance: METRONIDAZOLE
     Dosage: 500 MG, TID
     Route: 042
     Dates: start: 20220726
  29. ONDANSETRON [Concomitant]
     Active Substance: ONDANSETRON
     Indication: Nausea
     Dosage: 16 MG, PRN
     Route: 048
     Dates: start: 20220726
  30. HEPARIN SODIUM, PORCINE [Concomitant]
     Active Substance: HEPARIN SODIUM
     Indication: Thrombosis prophylaxis
     Dosage: 2 ML, BID
     Route: 042
     Dates: start: 20220727
  31. HEPARIN SODIUM, PORCINE [Concomitant]
     Active Substance: HEPARIN SODIUM
     Dosage: 5000 U, TID
     Route: 058
     Dates: start: 20220918
  32. LACTULOSE [Concomitant]
     Active Substance: LACTULOSE
     Indication: Encephalopathy
     Dosage: 20 G, BID
     Route: 048
     Dates: start: 20220727
  33. CYCLOBENZAPRINE [Concomitant]
     Active Substance: CYCLOBENZAPRINE
     Indication: Muscle spasms
     Dosage: 30 MG, PRN
     Route: 048
     Dates: start: 20220725
  34. DIGOXIN [Concomitant]
     Active Substance: DIGOXIN
     Indication: Atrial fibrillation
     Dosage: 125 UG, CONT
     Route: 042
     Dates: start: 20220730
  35. LOVENOX [Concomitant]
     Active Substance: ENOXAPARIN SODIUM
     Indication: Thrombosis prophylaxis
     Dosage: 0.5 MG/KG, BID
     Route: 058
     Dates: start: 20220731
  36. METOPROLOL TARTRATE [Concomitant]
     Active Substance: METOPROLOL TARTRATE
     Indication: Cardiac failure congestive
     Dosage: 12.5 MG, QD
     Route: 048
     Dates: start: 20220731
  37. AMIODARONE [Concomitant]
     Active Substance: AMIODARONE
     Indication: Atrial fibrillation
     Dosage: 400 MG, BID
     Route: 048
     Dates: start: 20220807
  38. AMIODARONE [Concomitant]
     Active Substance: AMIODARONE
     Dosage: 200 MG, QD
     Route: 048
     Dates: start: 20230310, end: 20230407
  39. HEPARIN [Concomitant]
     Active Substance: HEPARIN SODIUM
     Indication: Thrombosis prophylaxis
     Dosage: 5300 U, PRN
     Route: 042
     Dates: start: 20220805
  40. HYDROCORTISONE [Concomitant]
     Active Substance: HYDROCORTISONE
     Indication: Haemorrhoids
     Dosage: 1.25 %, BID
     Route: 054
     Dates: start: 20220807
  41. MILRINONE [Concomitant]
     Active Substance: MILRINONE
     Indication: Cardiac failure congestive
     Dosage: 2.23 ML, QD
     Route: 042
     Dates: start: 20220807
  42. POTASSIUM CHLORIDE [Concomitant]
     Active Substance: POTASSIUM CHLORIDE
     Indication: Hypokalaemia
     Dosage: 20 MEQ, QD
     Route: 048
     Dates: start: 20220807
  43. POTASSIUM CHLORIDE [Concomitant]
     Active Substance: POTASSIUM CHLORIDE
     Indication: Routine health maintenance
     Dosage: 20 MEQ, BID
     Route: 048
     Dates: start: 20230310
  44. SENNOSIDES A AND B [Concomitant]
     Active Substance: SENNOSIDES A AND B
     Indication: Constipation prophylaxis
     Dosage: 1 DF, QD
     Route: 048
     Dates: start: 20220807
  45. HYDRALAZINE [Concomitant]
     Active Substance: HYDRALAZINE HYDROCHLORIDE
     Indication: Hypertension
     Dosage: 10 MG, TID
     Route: 048
     Dates: start: 20220812
  46. TICAGRELOR [Concomitant]
     Active Substance: TICAGRELOR
     Indication: Thrombosis prophylaxis
     Dosage: 90 MG, BID
     Route: 048
     Dates: start: 20220811
  47. SIMETHICONE (DIMETHICONE) [Concomitant]
     Active Substance: DIMETHICONE
     Indication: Gastrointestinal disorder prophylaxis
     Dosage: 80 MG, PRN
     Route: 048
     Dates: start: 20220810
  48. SIMETHICONE (DIMETHICONE) [Concomitant]
     Active Substance: DIMETHICONE
     Dosage: 80 MG, BID
     Route: 048
     Dates: start: 20230310
  49. OXYGEN [Concomitant]
     Active Substance: OXYGEN
     Indication: Acute respiratory failure
     Dosage: 3 L, CONT
     Route: 055
     Dates: start: 20220601
  50. TAMSULOSIN [Concomitant]
     Active Substance: TAMSULOSIN
     Indication: Benign prostatic hyperplasia
     Dosage: 0.4 MG, QD
     Route: 048
     Dates: start: 20220907
  51. TAMSULOSIN [Concomitant]
     Active Substance: TAMSULOSIN
     Dosage: 0.8 MG, QD
     Route: 048
     Dates: start: 20230310, end: 20230409
  52. COLLAGENASE [Concomitant]
     Active Substance: COLLAGENASE CLOSTRIDIUM HISTOLYTICUM
     Indication: Diabetic wound
     Dosage: 1 DF, QD
     Route: 061
     Dates: start: 20221018
  53. LIDOCAINE [Concomitant]
     Active Substance: LIDOCAINE
     Indication: Pain prophylaxis
     Dosage: 1 DF, QD
     Route: 003
     Dates: start: 20220608
  54. MAGNESIUM HYDROXIDE [Concomitant]
     Active Substance: MAGNESIUM HYDROXIDE
     Indication: Constipation
     Dosage: 10 ML, QD
     Route: 048
     Dates: start: 20221018
  55. MAGNESIUM OXIDE [Concomitant]
     Active Substance: MAGNESIUM OXIDE
     Indication: Constipation
     Dosage: 400 MG, QD
     Route: 048
     Dates: start: 20221018
  56. ZINC OXIDE [Concomitant]
     Active Substance: ZINC OXIDE
     Indication: Proctalgia
     Dosage: 1 DF, QD
     Route: 061
     Dates: start: 20221018
  57. HALDOL [Concomitant]
     Active Substance: HALOPERIDOL
     Indication: Depression
     Dosage: 2 MG, PRN
     Route: 042
     Dates: start: 20220915
  58. TRAZODONE [Concomitant]
     Active Substance: TRAZODONE HYDROCHLORIDE
     Indication: Sleep disorder therapy
     Dosage: 50 MG, QD
     Route: 048
     Dates: start: 20220918
  59. TRAZODONE [Concomitant]
     Active Substance: TRAZODONE HYDROCHLORIDE
     Dosage: 50 MG, PRN
     Route: 048
     Dates: start: 20230315
  60. BUDESONIDE [Concomitant]
     Active Substance: BUDESONIDE
     Indication: Respiratory failure
     Dosage: 0.5 MG, BID
     Route: 055
     Dates: start: 20220927
  61. BUSPIRONE [Concomitant]
     Active Substance: BUSPIRONE HYDROCHLORIDE
     Indication: Depression
     Dosage: 5 MG, TID
     Route: 048
     Dates: start: 20221117
  62. OMEPRAZOLE [Concomitant]
     Active Substance: OMEPRAZOLE
     Indication: Dyspepsia
     Dosage: 20 MG, QD
     Route: 048
  63. DAPAGLIFLOZIN [Concomitant]
     Active Substance: DAPAGLIFLOZIN
     Indication: Cardiac failure congestive
     Dosage: 5 MG, QD
     Route: 048
     Dates: start: 20220909
  64. DAPAGLIFLOZIN [Concomitant]
     Active Substance: DAPAGLIFLOZIN
     Dosage: 10 MG, BID
     Route: 048
     Dates: start: 20221117
  65. METOPROLOL SUCCINATE [Concomitant]
     Active Substance: METOPROLOL SUCCINATE
     Indication: Hypertension
     Dosage: 12.5 MG, QD
     Route: 048
  66. METOPROLOL SUCCINATE [Concomitant]
     Active Substance: METOPROLOL SUCCINATE
     Dosage: 50 MG, QD
     Route: 048
     Dates: start: 20220605
  67. METOPROLOL SUCCINATE [Concomitant]
     Active Substance: METOPROLOL SUCCINATE
     Dosage: 12.5 MG, QD
     Route: 048
     Dates: start: 20230310, end: 20230407
  68. PANTOPRAZOLE [Concomitant]
     Active Substance: PANTOPRAZOLE
     Indication: Dyspepsia
     Dosage: 40 MG, QD
     Route: 042
     Dates: start: 20220605
  69. PANTOPRAZOLE [Concomitant]
     Active Substance: PANTOPRAZOLE
     Dosage: 40 MG, QD
     Route: 048
     Dates: start: 20220608
  70. PANTOPRAZOLE [Concomitant]
     Active Substance: PANTOPRAZOLE
     Dosage: 40 MG, QD
     Route: 048
     Dates: start: 20220730
  71. GABAPENTIN [Concomitant]
     Active Substance: GABAPENTIN
     Indication: Diabetic neuropathy
     Dosage: 600 MG, QD
     Route: 048
     Dates: start: 20220608
  72. POLYETHYLENE GLYCOLS [Concomitant]
     Active Substance: POLYETHYLENE GLYCOLS
     Dosage: 17 G, PRN
     Route: 048
     Dates: start: 20221018
  73. TOUJEO [Concomitant]
     Active Substance: INSULIN GLARGINE
     Indication: Type 2 diabetes mellitus
     Dosage: 40 IU, QD
     Route: 058
  74. HUMALOG [Concomitant]
     Active Substance: INSULIN LISPRO
     Indication: Type 2 diabetes mellitus
     Dosage: 8 IU, TID
     Route: 058
  75. HUMALOG [Concomitant]
     Active Substance: INSULIN LISPRO
     Dosage: 0.1 ML, TID
     Route: 058
     Dates: start: 202112
  76. PREDNISONE [Concomitant]
     Active Substance: PREDNISONE
     Indication: Chronic obstructive pulmonary disease
     Dosage: 30 MG, QD
     Route: 048
  77. SODIUM CHLORIDE [Concomitant]
     Active Substance: SODIUM CHLORIDE
     Indication: Hyponatraemia
     Dosage: 5 ML, BID
     Route: 042
     Dates: start: 20220724
  78. SODIUM CHLORIDE [Concomitant]
     Active Substance: SODIUM CHLORIDE
     Indication: Flushing
  79. FERROUS SULFATE [Concomitant]
     Active Substance: FERROUS SULFATE
     Indication: Iron deficiency anaemia
     Dosage: 325 MG, QD
     Route: 048
     Dates: start: 20230116
  80. PROTONIX [Concomitant]
     Active Substance: PANTOPRAZOLE SODIUM
     Indication: Gastrointestinal haemorrhage
     Dosage: 40 MG, BID
     Route: 042
     Dates: start: 20230116
  81. SPIRONOLACTONE [Concomitant]
     Active Substance: SPIRONOLACTONE
     Indication: Cardiac failure congestive
     Dosage: 25 MG, QD
     Route: 048
     Dates: start: 20220527
  82. DOCUSATE;SENNA ALEXANDRINA [Concomitant]
     Indication: Constipation
     Dosage: 1 DF, BID
     Route: 048
     Dates: start: 20221018
  83. DOCUSATE;SENNA ALEXANDRINA [Concomitant]
     Indication: Constipation prophylaxis
     Dosage: 2 DF, PRN
     Route: 048
  84. MICONAZOLE [Concomitant]
     Active Substance: MICONAZOLE
     Dosage: 1 %, BID
     Route: 061
     Dates: start: 20230310
  85. DESLORATADINE [Concomitant]
     Active Substance: DESLORATADINE
     Dosage: 40 %, ONCE
     Route: 061
     Dates: start: 20230315
  86. BUMETANIDE [Concomitant]
     Active Substance: BUMETANIDE
     Indication: Oedema
     Dosage: 1 MG, BID
     Route: 048
     Dates: start: 20230310, end: 20230409
  87. ALBUTEROL [Concomitant]
     Active Substance: ALBUTEROL
     Indication: Chronic obstructive pulmonary disease
     Dosage: 2 PUFF(S), PRN
     Route: 055
     Dates: start: 20230315
  88. INSULIN LISPRO [Concomitant]
     Active Substance: INSULIN LISPRO
     Indication: Type 2 diabetes mellitus
     Dosage: 3.75 IU, QID
     Route: 058
  89. ASPIRIN [Concomitant]
     Active Substance: ASPIRIN
     Indication: Prophylaxis
     Dosage: 81 MG, QD
     Route: 048
     Dates: start: 20220624, end: 20230406

REACTIONS (5)
  - Gastrointestinal haemorrhage [Recovered/Resolved]
  - Sepsis [Recovered/Resolved]
  - Constipation [Not Recovered/Not Resolved]
  - Anaemia [Recovered/Resolved]
  - Hypotension [Not Recovered/Not Resolved]

NARRATIVE: CASE EVENT DATE: 20230406
